FAERS Safety Report 9059744 (Version 1)
Quarter: 2013Q1

REPORT INFORMATION
  Report Type: Spontaneous
  Country: US (occurrence: None)
  Receive Date: 20130206
  Receipt Date: 20130206
  Transmission Date: 20140127
  Serious: No
  Sender: FDA-Public Use
  Company Number: None

PATIENT
  Age: 65 Year
  Sex: Male
  Weight: 102 kg

DRUGS (1)
  1. REMICADE [Suspect]
     Dosage: 500 MG/250 NS; 125ML/HR/ IV DRIP
     Route: 041
     Dates: start: 20121028, end: 20130205

REACTIONS (2)
  - Rash [None]
  - Urticaria [None]
